FAERS Safety Report 19675376 (Version 2)
Quarter: 2025Q2

REPORT INFORMATION
  Report Type: Spontaneous
  Country: US (occurrence: US)
  Receive Date: 20210809
  Receipt Date: 20250603
  Transmission Date: 20250716
  Serious: Yes (Hospitalization, Other)
  Sender: AUROBINDO
  Company Number: US-MLMSERVICE-20210726-3010144-1

PATIENT
  Age: 67 Year
  Sex: Male

DRUGS (7)
  1. CLOPIDOGREL [Suspect]
     Active Substance: CLOPIDOGREL BISULFATE
     Indication: Antiplatelet therapy
     Route: 065
  2. ASPIRIN [Suspect]
     Active Substance: ASPIRIN
     Indication: Antiplatelet therapy
     Route: 065
  3. ASPIRIN [Suspect]
     Active Substance: ASPIRIN
     Route: 065
  4. HYDRALAZINE [Concomitant]
     Active Substance: HYDRALAZINE HYDROCHLORIDE
     Indication: Hypertension
     Route: 042
  5. LABETALOL [Concomitant]
     Active Substance: LABETALOL
     Indication: Hypertension
     Route: 042
  6. NICARDIPINE [Concomitant]
     Active Substance: NICARDIPINE
     Indication: Hypertension
     Route: 042
  7. ALTEPLASE [Concomitant]
     Active Substance: ALTEPLASE
     Indication: Ischaemic stroke
     Route: 065

REACTIONS (1)
  - Haemorrhagic transformation stroke [Unknown]
